FAERS Safety Report 6143709-4 (Version None)
Quarter: 2009Q2

REPORT INFORMATION
  Report Type: 
  Country: None (occurrence: None)
  Receive Date: 20090403
  Receipt Date: 20090327
  Transmission Date: 20091009
  Serious: Yes (Death, Hospitalization)
  Sender: FDA-Public Use
  Company Number: JP-AMGEN-US329519

PATIENT
  Sex: Male

DRUGS (2)
  1. ENBREL [Suspect]
     Indication: RHEUMATOID ARTHRITIS
     Dosage: 50 MG/WEEK, SOLUTION FOR INJECTION
     Route: 058
     Dates: start: 20080627, end: 20090127
  2. RHEUMATREX [Concomitant]
     Route: 048
     Dates: end: 20090101

REACTIONS (5)
  - BLOOD PRESSURE DECREASED [None]
  - CONSTIPATION [None]
  - ILEUS [None]
  - PNEUMONIA [None]
  - URINE OUTPUT DECREASED [None]
